FAERS Safety Report 15942741 (Version 1)
Quarter: 2019Q1

REPORT INFORMATION
  Report Type: Spontaneous
  Country: US (occurrence: US)
  Receive Date: 20190118
  Receipt Date: 20190118
  Transmission Date: 20190417
  Serious: Yes (Life-Threatening)
  Sender: FDA-Public Use
  Company Number: None

PATIENT
  Age: 66 Year
  Sex: Male
  Weight: 92.53 kg

DRUGS (1)
  1. NITROGLYCERIN. [Suspect]
     Active Substance: NITROGLYCERIN

REACTIONS (8)
  - Incorrect product administration duration [None]
  - Headache [None]
  - Cold sweat [None]
  - Hyperhidrosis [None]
  - Device malfunction [None]
  - Visual impairment [None]
  - Confusional state [None]
  - Vision blurred [None]

NARRATIVE: CASE EVENT DATE: 20190117
